FAERS Safety Report 8919781 (Version 1)
Quarter: 2012Q4

REPORT INFORMATION
  Report Type: Report from Study
  Country: US (occurrence: US)
  Receive Date: 20121121
  Receipt Date: 20121121
  Transmission Date: 20130627
  Serious: Yes (Hospitalization, Other)
  Sender: FDA-Public Use
  Company Number: US-CELGENEUS-163-50794-12111675

PATIENT
  Age: 66 Year
  Sex: Female
  Weight: 60 kg

DRUGS (2)
  1. REVLIMID [Suspect]
     Indication: MULTIPLE MYELOMA
     Dosage: 10 Milligram
     Route: 048
     Dates: start: 20111217, end: 20120102
  2. VIDAZA [Suspect]
     Indication: MULTIPLE MYELOMA
     Dosage: 75 milligram/sq. meter
     Route: 058
     Dates: start: 20111212, end: 20111216

REACTIONS (3)
  - Lung adenocarcinoma [Unknown]
  - Adenocarcinoma pancreas [Unknown]
  - Bacteraemia [Unknown]
